FAERS Safety Report 8608907-6 (Version None)
Quarter: 2012Q3

REPORT INFORMATION
  Report Type: 
  Country: None (occurrence: None)
  Receive Date: 20120808
  Receipt Date: 20120726
  Transmission Date: 20120928
  Serious: Yes (Hospitalization, Other)
  Sender: FDA-Public Use
  Company Number: AUR-APL-2012-03291

PATIENT
  Age: 65 Year
  Sex: Female

DRUGS (8)
  1. COUMADIN [Concomitant]
  2. BISOPROLOL FUMARATE [Concomitant]
  3. LORAZEPAM [Concomitant]
  4. METFFORMIN HYDROCHLORIDE [Concomitant]
  5. LASIX [Suspect]
     Indication: HYPERTENSION
     Dosage: 25 MG, DAILY, ORAL
     Route: 048
     Dates: start: 20070101, end: 20120719
  6. RAMIPRIL [Suspect]
     Indication: HYPERTENSION
     Dosage: 5 MG/DAY, ORAL
     Route: 048
     Dates: start: 20070101, end: 20120719
  7. AMLODIPINE [Concomitant]
  8. LANSOPRAZOLE [Concomitant]

REACTIONS (5)
  - APRAXIA [None]
  - HYPONATRAEMIA [None]
  - BRADYKINESIA [None]
  - BRADYPHRENIA [None]
  - FALL [None]
